FAERS Safety Report 4333966-9 (Version None)
Quarter: 2004Q2

REPORT INFORMATION
  Report Type: 
  Country: None (occurrence: None)
  Receive Date: 20040402
  Receipt Date: 20040322
  Transmission Date: 20050107
  Serious: Yes (Other)
  Sender: FDA-Public Use
  Company Number: 2004019968

PATIENT
  Age: 44 Year
  Sex: Female

DRUGS (8)
  1. NEURONTIN [Suspect]
     Indication: CONVULSION
     Dosage: 400 MG (UNKNOWN); ORAL
     Route: 048
     Dates: start: 20030801
  2. CLOPIDOGREL BISULFATE [Concomitant]
  3. VICODIN [Concomitant]
  4. DIAZEPAM [Concomitant]
  5. FEXOFENADINE HYDROCHLORIDE [Concomitant]
  6. BUDESONIDE [Concomitant]
  7. FUROSEMIDE [Concomitant]
  8. POTASSIUM [Concomitant]

REACTIONS (8)
  - AGITATION [None]
  - CEREBROVASCULAR ACCIDENT [None]
  - CONFUSIONAL STATE [None]
  - CONVULSION [None]
  - FALL [None]
  - HEADACHE [None]
  - LOSS OF CONSCIOUSNESS [None]
  - MIGRAINE [None]
